FAERS Safety Report 9587733 (Version 3)
Quarter: 2014Q1

REPORT INFORMATION
  Report Type: Spontaneous
  Country: US (occurrence: US)
  Receive Date: 20131003
  Receipt Date: 20140121
  Transmission Date: 20141002
  Serious: Yes (Death, Other)
  Sender: FDA-Public Use
  Company Number: US-UCBSA-099256

PATIENT
  Age: 9 Year
  Sex: Male
  Weight: 22.5 kg

DRUGS (10)
  1. KEPPRA [Suspect]
     Indication: GRAND MAL CONVULSION
     Route: 048
     Dates: start: 20130119, end: 2013
  2. KEPPRA [Suspect]
     Indication: GRAND MAL CONVULSION
     Dosage: WEANED DOSE
     Route: 048
     Dates: start: 2013
  3. ONFI [Suspect]
     Indication: GRAND MAL CONVULSION
     Dosage: 10 MG AM, 15 MG PM
     Route: 048
     Dates: start: 20130703
  4. ONFI [Suspect]
     Indication: GRAND MAL CONVULSION
     Route: 048
     Dates: start: 2013, end: 2013
  5. ONFI [Suspect]
     Indication: GRAND MAL CONVULSION
     Route: 048
     Dates: start: 20130218, end: 2013
  6. ONFI [Suspect]
     Indication: GRAND MAL CONVULSION
     Route: 048
  7. CROMOLYN [Concomitant]
     Dosage: 4% SOLUTION
     Route: 047
     Dates: start: 20130717
  8. TOBRAMYCIN [Concomitant]
     Indication: CONJUNCTIVITIS ALLERGIC
     Dosage: 1 DROP EACH EYE
     Route: 047
     Dates: start: 20130717, end: 20130731
  9. EPINEPHRINE [Concomitant]
     Indication: CONJUNCTIVITIS ALLERGIC
     Route: 047
     Dates: start: 20130717
  10. PERODOXIN [Concomitant]
     Indication: IRRITABILITY
     Route: 048

REACTIONS (7)
  - Epilepsy [Fatal]
  - Conjunctivitis allergic [Recovering/Resolving]
  - Tinea capitis [Unknown]
  - Cataract subcapsular [Not Recovered/Not Resolved]
  - Body height abnormal [Unknown]
  - Abnormal weight gain [Unknown]
  - Drug ineffective [Unknown]
